FAERS Safety Report 6856665-8 (Version None)
Quarter: 2010Q3

REPORT INFORMATION
  Report Type: 
  Country: None (occurrence: None)
  Receive Date: 20100716
  Receipt Date: 20100716
  Transmission Date: 20110219
  Serious: Yes (Disabling, Other)
  Sender: FDA-Public Use
  Company Number: None

PATIENT
  Age: 47 Year
  Sex: Female
  Weight: 74.8435 kg

DRUGS (4)
  1. HYDROCODONE BITARTRATE/HOMATROPINE METHYBROMIDE [Suspect]
     Indication: COUGH
     Dosage: 2 PRN ORAL
     Route: 048
     Dates: start: 20100626, end: 20100703
  2. PROMETHAZINE [Concomitant]
  3. BENADRYL [Concomitant]
  4. LEVAQUIN [Concomitant]

REACTIONS (3)
  - INCORRECT DOSE ADMINISTERED [None]
  - MIGRAINE [None]
  - NAUSEA [None]
